FAERS Safety Report 6163306-4 (Version None)
Quarter: 2009Q2

REPORT INFORMATION
  Report Type: 
  Country: None (occurrence: None)
  Receive Date: 20090422
  Receipt Date: 20090413
  Transmission Date: 20091009
  Serious: Yes (Other)
  Sender: FDA-Public Use
  Company Number: US-BRISTOL-MYERS SQUIBB COMPANY-14595342

PATIENT
  Age: 73 Year
  Sex: Female

DRUGS (3)
  1. CYCLOPHOSPHAMIDE [Suspect]
     Indication: BREAST CANCER
  2. PACLITAXEL [Suspect]
  3. DOXORUBICIN HCL [Suspect]
     Indication: BREAST CANCER

REACTIONS (1)
  - CUTANEOUS LUPUS ERYTHEMATOSUS [None]
